FAERS Safety Report 22656652 (Version 1)
Quarter: 2023Q2

REPORT INFORMATION
  Report Type: Spontaneous
  Country: FR (occurrence: FR)
  Receive Date: 20230630
  Receipt Date: 20230630
  Transmission Date: 20230722
  Serious: Yes (Hospitalization)
  Sender: FDA-Public Use
  Company Number: FR-AFSSAPS-NY2023000611

PATIENT
  Age: 78 Year
  Sex: Female
  Weight: 104 kg

DRUGS (16)
  1. FLUINDIONE [Suspect]
     Active Substance: FLUINDIONE
     Indication: Thrombosis prophylaxis
     Route: 048
     Dates: start: 20080101, end: 20230123
  2. GLUCOPHAGE [Suspect]
     Active Substance: METFORMIN HYDROCHLORIDE
     Indication: Type 2 diabetes mellitus
     Dates: start: 20080101, end: 20230123
  3. EPOETIN BETA [Suspect]
     Active Substance: ERYTHROPOIETIN
     Indication: Nephrogenic anaemia
     Route: 058
     Dates: start: 20080101, end: 20230123
  4. SECTRAL [Suspect]
     Active Substance: ACEBUTOLOL HYDROCHLORIDE
     Indication: Hypertension
     Dates: start: 20080101, end: 20230125
  5. CORDARONE [Suspect]
     Active Substance: AMIODARONE HYDROCHLORIDE
     Indication: Atrial fibrillation
     Dates: start: 20080101, end: 20230123
  6. NOVORAPID [Suspect]
     Active Substance: INSULIN ASPART
     Indication: Type 2 diabetes mellitus
     Dosage: U/ML
     Dates: start: 20080101, end: 20230123
  7. ZOCOR [Suspect]
     Active Substance: SIMVASTATIN
     Indication: Dyslipidaemia
     Dates: start: 20080101, end: 20230123
  8. FUROSEMIDE [Suspect]
     Active Substance: FUROSEMIDE
     Indication: Hypertension
     Dates: start: 20080101, end: 20230123
  9. SERETIDE [Concomitant]
     Active Substance: FLUTICASONE PROPIONATE\SALMETEROL XINAFOATE
     Indication: Chronic obstructive pulmonary disease
     Dosage: 500/50 MICROGRAMMES/DOSE
     Dates: start: 20080101, end: 20230123
  10. ESOMEPRAZOLE [Concomitant]
     Active Substance: ESOMEPRAZOLE
     Indication: Product used for unknown indication
     Dates: start: 20080101, end: 20230123
  11. POTASSIUM CHLORIDE [Concomitant]
     Active Substance: POTASSIUM CHLORIDE
     Indication: Drug toxicity prophylaxis
     Dates: start: 20080101, end: 20230123
  12. ASCOFER [FERROUS ASCORBATE] [Concomitant]
     Indication: Mineral supplementation
     Dates: start: 20080101, end: 20230123
  13. ALBUTEROL [Concomitant]
     Active Substance: ALBUTEROL
     Indication: Chronic obstructive pulmonary disease
     Dates: start: 20080101, end: 20230123
  14. GLYCOPYRROLATE [Concomitant]
     Active Substance: GLYCOPYRROLATE
     Indication: Chronic obstructive pulmonary disease
     Dates: start: 20080101, end: 20230123
  15. DESLORATADINE [Concomitant]
     Active Substance: DESLORATADINE
     Indication: Product used for unknown indication
     Dates: start: 20080101, end: 20230123
  16. NEURONTIN [Concomitant]
     Active Substance: GABAPENTIN
     Indication: Product used for unknown indication
     Dates: start: 20080101, end: 20230123

REACTIONS (3)
  - Shock haemorrhagic [Recovered/Resolved]
  - Blood loss anaemia [Recovering/Resolving]
  - Abdominal wall haematoma [Recovered/Resolved]

NARRATIVE: CASE EVENT DATE: 20230123
